FAERS Safety Report 8996837 (Version 1)
Quarter: 2012Q4

REPORT INFORMATION
  Report Type: Spontaneous
  Country: US (occurrence: None)
  Receive Date: 20121228
  Receipt Date: 20121228
  Transmission Date: 20130627
  Serious: Yes (Life-Threatening, Hospitalization)
  Sender: FDA-Public Use
  Company Number: None

PATIENT
  Age: 87 Year
  Sex: Female
  Weight: 63.5 kg

DRUGS (3)
  1. VALACYCLOVIR [Suspect]
     Dosage: 1 tablet   3 x day  oral
     Route: 048
     Dates: start: 20121127
  2. VALACYCLOVIR [Suspect]
     Dates: start: 20121118
  3. BLOOD PRESSURE MEDICATION [Concomitant]

REACTIONS (2)
  - Mania [None]
  - Coma [None]
